FAERS Safety Report 18993015 (Version 3)
Quarter: 2022Q2

REPORT INFORMATION
  Report Type: Spontaneous
  Country: JP (occurrence: JP)
  Receive Date: 20210310
  Receipt Date: 20220624
  Transmission Date: 20220721
  Serious: Yes (Hospitalization, Other)
  Sender: FDA-Public Use
  Company Number: JP-VIIV HEALTHCARE ULC-JP2021JPN057785

PATIENT

DRUGS (3)
  1. ABACAVIR SULFATE\DOLUTEGRAVIR SODIUM\LAMIVUDINE [Suspect]
     Active Substance: ABACAVIR SULFATE\DOLUTEGRAVIR SODIUM\LAMIVUDINE
     Indication: HIV infection
     Dosage: 1 DF, 1D
     Route: 048
     Dates: start: 2015
  2. ABACAVIR SULFATE\DOLUTEGRAVIR SODIUM\LAMIVUDINE [Suspect]
     Active Substance: ABACAVIR SULFATE\DOLUTEGRAVIR SODIUM\LAMIVUDINE
     Dosage: 1 DF, 1D
     Route: 050
  3. DOVATO [Suspect]
     Active Substance: DOLUTEGRAVIR SODIUM\LAMIVUDINE
     Indication: HIV infection
     Dosage: UNK
     Route: 048

REACTIONS (4)
  - Lung neoplasm malignant [Not Recovered/Not Resolved]
  - Brain cancer metastatic [Not Recovered/Not Resolved]
  - Monoplegia [Unknown]
  - Dizziness [Unknown]

NARRATIVE: CASE EVENT DATE: 20200101
